FAERS Safety Report 8163755-9 (Version None)
Quarter: 2012Q1

REPORT INFORMATION
  Report Type: 
  Country: None (occurrence: None)
  Receive Date: 20120224
  Receipt Date: 20120217
  Transmission Date: 20120608
  Serious: Yes (Other)
  Sender: FDA-Public Use
  Company Number: PHEH2011US06680

PATIENT
  Sex: Female

DRUGS (10)
  1. TRANXENE [Suspect]
     Dosage: 7.5 MG, BID
  2. BENAZEPRIL HYDROCHLORIDE [Concomitant]
     Dosage: 20 MG, QD
  3. BYSTOLIC [Concomitant]
     Dosage: 10 MG, QD
  4. VALTURNA [Suspect]
     Indication: BLOOD PRESSURE
     Dosage: 1 DF (300/320 MG), QD
  5. CRESTOR [Concomitant]
     Dosage: 10 MG, QD
  6. HYDROCODONE BITARTRATE [Concomitant]
  7. AMLODIPINE [Concomitant]
     Dosage: 5 MG, QD
  8. PLAVIX [Concomitant]
     Dosage: 75 MG, QW3
  9. ACETYLSALICYLIC ACID SRT [Concomitant]
     Dosage: 81 MG, BID
  10. TRANZINE [Concomitant]
     Dosage: 7.5 MG, BID

REACTIONS (6)
  - MICTURITION DISORDER [None]
  - CEREBROVASCULAR ACCIDENT [None]
  - OVERDOSE [None]
  - BLOOD PRESSURE INCREASED [None]
  - TYPE 2 DIABETES MELLITUS [None]
  - HEART RATE INCREASED [None]
